FAERS Safety Report 13564948 (Version 2)
Quarter: 2017Q2

REPORT INFORMATION
  Report Type: Report from Study
  Country: DE (occurrence: DE)
  Receive Date: 20170519
  Receipt Date: 20170616
  Transmission Date: 20170830
  Serious: Yes (Other)
  Sender: FDA-Public Use
  Company Number: PHHY2017DE073636

PATIENT
  Sex: Female
  Weight: 64 kg

DRUGS (15)
  1. PANTOPRAZOL [Concomitant]
     Active Substance: PANTOPRAZOLE SODIUM
     Dosage: 40 MG, QD
     Route: 048
     Dates: start: 20160613, end: 20160618
  2. CETRIZIN [Concomitant]
     Indication: HYPERSENSITIVITY
  3. CEFUROXIME. [Concomitant]
     Active Substance: CEFUROXIME
     Indication: GASTROINTESTINAL INFECTION
     Dosage: 500 MG, TID
     Route: 048
     Dates: start: 20140624, end: 20140701
  4. PANTOPRAZOL [Concomitant]
     Active Substance: PANTOPRAZOLE SODIUM
     Indication: PROPHYLAXIS
     Dosage: 40 MG, QD
     Route: 048
     Dates: start: 20160329, end: 20160403
  5. CETRIZIN [Concomitant]
     Indication: SEASONAL ALLERGY
     Dosage: 10 MG, QD
     Route: 048
     Dates: start: 20110410
  6. CEFUROXIME. [Concomitant]
     Active Substance: CEFUROXIME
     Indication: VIRAL UPPER RESPIRATORY TRACT INFECTION
     Dosage: 1 DF, QD
     Route: 048
     Dates: start: 20160720, end: 20160730
  7. LORAZEPAM. [Concomitant]
     Active Substance: LORAZEPAM
     Indication: SLEEP DISORDER
     Dosage: 1 MG, PRN
     Route: 048
     Dates: start: 201101
  8. METHYLPREDNISOLON [Concomitant]
     Active Substance: METHYLPREDNISOLONE
     Indication: MULTIPLE SCLEROSIS RELAPSE
     Dosage: 1000 MG, QD
     Route: 042
     Dates: start: 20121005, end: 20121007
  9. METHYLPREDNISOLON [Concomitant]
     Active Substance: METHYLPREDNISOLONE
     Dosage: 2000 MG, QD
     Route: 058
     Dates: start: 20160613, end: 20160618
  10. CLEXANE [Concomitant]
     Active Substance: ENOXAPARIN SODIUM
     Dosage: 40 MG, QD
     Route: 058
     Dates: start: 20160613, end: 20160618
  11. CLONT [Concomitant]
     Indication: GASTROINTESTINAL INFECTION
     Dosage: 400 MG, TID
     Route: 048
     Dates: start: 20140624, end: 20140701
  12. OPIPRAMOL [Concomitant]
     Active Substance: OPIPRAMOL
     Indication: MULTIPLE SCLEROSIS
     Dosage: 1 DF, BID
     Route: 048
     Dates: start: 20160115
  13. GILENYA [Suspect]
     Active Substance: FINGOLIMOD HYDROCHLORIDE
     Indication: MULTIPLE SCLEROSIS
     Dosage: 0.5 MG, QD
     Route: 048
     Dates: start: 20110720, end: 20170511
  14. MCP [Concomitant]
     Active Substance: METOCLOPRAMIDE HYDROCHLORIDE
     Indication: DRUG HYPERSENSITIVITY
     Dosage: 30 DRP, QD
     Route: 048
     Dates: start: 201203
  15. CLEXANE [Concomitant]
     Active Substance: ENOXAPARIN SODIUM
     Indication: THROMBOSIS PROPHYLAXIS
     Dosage: 40 MG, QD
     Route: 058
     Dates: start: 20160329, end: 20160403

REACTIONS (1)
  - Malignant melanoma [Recovered/Resolved]

NARRATIVE: CASE EVENT DATE: 201704
